FAERS Safety Report 12157717 (Version 1)
Quarter: 2016Q1

REPORT INFORMATION
  Report Type: Spontaneous
  Country: US (occurrence: US)
  Receive Date: 20160308
  Receipt Date: 20160308
  Transmission Date: 20160526
  Serious: Yes (Hospitalization)
  Sender: FDA-Public Use
  Company Number: US-JNJFOC-20150103413

PATIENT
  Sex: Male

DRUGS (18)
  1. BRIMONIDINE TARTRATE. [Concomitant]
     Active Substance: BRIMONIDINE TARTRATE
     Route: 047
  2. MOMETASONE FUROATE. [Concomitant]
     Active Substance: MOMETASONE FUROATE
  3. TRIMETHOPRIM. [Concomitant]
     Active Substance: TRIMETHOPRIM
  4. FUROSEMIDE. [Concomitant]
     Active Substance: FUROSEMIDE
  5. OMEPRAZOLE. [Concomitant]
     Active Substance: OMEPRAZOLE
  6. CENTRUM NOS [Concomitant]
  7. DORZOLAMIDE [Concomitant]
     Active Substance: DORZOLAMIDE
     Route: 047
  8. PREDNISONE. [Concomitant]
     Active Substance: PREDNISONE
  9. SPIRIVA [Concomitant]
     Active Substance: TIOTROPIUM BROMIDE MONOHYDRATE
  10. FOLIC ACID. [Concomitant]
     Active Substance: FOLIC ACID
  11. MAGNESIUM GLUCONATE [Concomitant]
     Active Substance: MAGNESIUM GLUCONATE
  12. SPIRONOLACTONE. [Concomitant]
     Active Substance: SPIRONOLACTONE
  13. OXYCONTIN [Concomitant]
     Active Substance: OXYCODONE HYDROCHLORIDE
  14. LORAZEPAM. [Concomitant]
     Active Substance: LORAZEPAM
  15. IMBRUVICA [Suspect]
     Active Substance: IBRUTINIB
     Indication: CHRONIC LYMPHOCYTIC LEUKAEMIA
     Route: 048
     Dates: start: 20131224
  16. ASPIRIN. [Concomitant]
     Active Substance: ASPIRIN
  17. LUMIGAN [Concomitant]
     Active Substance: BIMATOPROST
     Route: 047
  18. TAMSULOSIN [Concomitant]
     Active Substance: TAMSULOSIN

REACTIONS (1)
  - Pneumonia [Not Recovered/Not Resolved]
